FAERS Safety Report 19410502 (Version 3)
Quarter: 2021Q3

REPORT INFORMATION
  Report Type: Report from Study
  Country: GB (occurrence: GB)
  Receive Date: 20210614
  Receipt Date: 20210709
  Transmission Date: 20211014
  Serious: Yes (Hospitalization, Other)
  Sender: FDA-Public Use
  Company Number: GB-CELLTRION INC.-2021GB007861

PATIENT

DRUGS (163)
  1. LETROZOLE. [Suspect]
     Active Substance: LETROZOLE
     Dosage: 2.5 MG, QD (CUMULATIVE DOSE TO FIRST REACTION: 92.5 MG)
     Route: 048
     Dates: start: 20180119, end: 20180126
  2. CARMELLOSE [Concomitant]
     Active Substance: CARBOXYMETHYLCELLULOSE
     Dosage: UNK
     Route: 061
     Dates: start: 20181220, end: 20190116
  3. CARMELLOSE SODIUM [Concomitant]
     Active Substance: CARBOXYMETHYLCELLULOSE SODIUM
     Dosage: UNK
     Route: 061
     Dates: start: 20181220, end: 20190116
  4. CETIRIZINE [Concomitant]
     Active Substance: CETIRIZINE HYDROCHLORIDE
     Dosage: 10 MICROGRAM
     Route: 048
     Dates: start: 20080430
  5. CHLORPHENAMINE [Concomitant]
     Active Substance: CHLORPHENIRAMINE MALEATE
     Dosage: 4 MG AND 1 TAKEN PRIOR TO STUDY
     Route: 042
     Dates: start: 20180202
  6. DOXAZOSIN [Concomitant]
     Active Substance: DOXAZOSIN MESYLATE
     Dosage: 2 MG AND 11 DAYS
     Route: 048
     Dates: start: 20190908
  7. FLUCONAZOLE. [Concomitant]
     Active Substance: FLUCONAZOLE
     Dosage: 100 MG AND 11 DAYS
     Route: 048
     Dates: start: 20180125
  8. GENTAMICIN. [Concomitant]
     Active Substance: GENTAMICIN
     Dosage: 400 MG
     Route: 042
     Dates: start: 20190526, end: 20190526
  9. HEPARIN SODIUM. [Concomitant]
     Active Substance: HEPARIN SODIUM
     Indication: PROPHYLAXIS
     Dosage: 5 ML
     Route: 042
     Dates: start: 20190502, end: 20191106
  10. METOCLOPRAMIDE. [Concomitant]
     Active Substance: METOCLOPRAMIDE
     Dosage: 10 MG TAKEN PRIOR TO STUDY
     Route: 048
     Dates: start: 20180202
  11. METOCLOPRAMIDE. [Concomitant]
     Active Substance: METOCLOPRAMIDE
     Dosage: 10 MG, AS NEEDED
     Route: 048
     Dates: start: 201910
  12. METRONIDAZOLE. [Concomitant]
     Active Substance: METRONIDAZOLE
     Dosage: 500 MG AND 31 DAYS
     Route: 042
     Dates: start: 20190526
  13. ONDANSETRON [Concomitant]
     Active Substance: ONDANSETRON
     Dosage: 4 MG, AS NEEDED
     Route: 048
     Dates: start: 20181216, end: 20190107
  14. PARACETAMOL [Concomitant]
     Active Substance: ACETAMINOPHEN
     Indication: OEDEMA
     Dosage: 1 G (DOSE FORM: 245)
     Route: 048
     Dates: start: 20180225, end: 20180301
  15. QUININE SULPHATE [Concomitant]
     Active Substance: QUININE SULFATE
     Dosage: 200 MG AND 11  DAYS
     Route: 048
     Dates: start: 20040219
  16. SILVER NITRATE. [Concomitant]
     Active Substance: SILVER NITRATE
     Dosage: UNK
     Route: 061
     Dates: start: 20190522, end: 20190522
  17. SILVER NITRATE. [Concomitant]
     Active Substance: SILVER NITRATE
     Dosage: UNK
     Route: 061
     Dates: start: 20190527, end: 20190527
  18. SODIUM CHLORIDE. [Concomitant]
     Active Substance: SODIUM CHLORIDE
     Dosage: 500 ML
     Route: 042
     Dates: start: 20181123, end: 20181123
  19. SODIUM CHLORIDE. [Concomitant]
     Active Substance: SODIUM CHLORIDE
     Dosage: 500 ML
     Route: 042
     Dates: start: 20190523, end: 20190523
  20. VANCOMYCIN [Concomitant]
     Active Substance: VANCOMYCIN
     Dosage: 500 MG
     Route: 042
     Dates: start: 20181120, end: 20181122
  21. PACLITAXEL LIPOSOME [Suspect]
     Active Substance: PACLITAXEL
     Indication: BREAST CANCER
     Dosage: 156 MG
     Route: 042
     Dates: start: 20180202, end: 20180518
  22. BENDROFLUMETHIAZIDE [Concomitant]
     Active Substance: BENDROFLUMETHIAZIDE
     Dosage: 2.5 MG, QD (DOSE FORM: 245; CUMULATIVE DOSE TO FIRST REACTION: 1399.8959 MG)
     Route: 048
     Dates: start: 20190908
  23. COLECALCIFEROL [Concomitant]
     Active Substance: CHOLECALCIFEROL
     Dosage: AND 21 DAYS
     Route: 048
     Dates: start: 20180926
  24. IRON [Concomitant]
     Active Substance: IRON
     Dosage: 630 MG, QD (DOSE FORM: 245)
     Route: 048
     Dates: start: 20190730
  25. METOCLOPRAMIDE. [Concomitant]
     Active Substance: METOCLOPRAMIDE
     Dosage: 10 MG, AS NEEDED (DOSE FORM: 245)
     Route: 048
     Dates: start: 201910
  26. METRONIDAZOLE. [Concomitant]
     Active Substance: METRONIDAZOLE
     Dosage: 400 MG
     Route: 065
     Dates: start: 20181122, end: 20181123
  27. OMEPRAZOLE. [Concomitant]
     Active Substance: OMEPRAZOLE
     Dosage: 20 MG, QD (DOSE FORM: 245, CUMULATIVE DOSE TO FIRST REACTION: 61120.832 MG)
     Route: 048
     Dates: start: 20091014
  28. OMEPRAZOLE. [Concomitant]
     Active Substance: OMEPRAZOLE
     Dosage: 40 MG AND 21 DAYS
     Route: 048
     Dates: start: 20191107, end: 20200205
  29. ONDANSETRON [Concomitant]
     Active Substance: ONDANSETRON
     Dosage: 4 MG (DOSE FORM: 245)
     Route: 048
     Dates: start: 20190920, end: 20190920
  30. ONDANSETRON [Concomitant]
     Active Substance: ONDANSETRON
     Dosage: 4 MG, AS NEEDED
     Route: 048
     Dates: start: 20190920, end: 20190920
  31. PARACETAMOL [Concomitant]
     Active Substance: ACETAMINOPHEN
     Dosage: 1 G, AS NEEDED
     Route: 048
     Dates: start: 20181003
  32. PIRITON [Concomitant]
     Active Substance: CHLORPHENIRAMINE MALEATE
     Dosage: 4 MG (DOSE FORM: 245)
     Route: 048
     Dates: start: 20180125
  33. RANITIDINE. [Concomitant]
     Active Substance: RANITIDINE
     Dosage: 150 MG
     Route: 065
     Dates: start: 20181123, end: 20181123
  34. SODIUM CHLORIDE. [Concomitant]
     Active Substance: SODIUM CHLORIDE
     Dosage: 500 ML
     Route: 042
     Dates: start: 20181122, end: 20181123
  35. SODIUM CHLORIDE. [Concomitant]
     Active Substance: SODIUM CHLORIDE
     Dosage: 500 ML
     Route: 042
     Dates: start: 20190522, end: 20190522
  36. TOLNAFTATE. [Concomitant]
     Active Substance: TOLNAFTATE
     Dosage: UNK
     Route: 061
     Dates: start: 20181220, end: 20190116
  37. TRANEXAMIC ACID. [Concomitant]
     Active Substance: TRANEXAMIC ACID
     Dosage: 3 G, QD (DOSE FORM: 245)
     Route: 048
     Dates: start: 20190804, end: 20190806
  38. TRIMETHOPRIM. [Concomitant]
     Active Substance: TRIMETHOPRIM
     Dosage: 400 MG, QD (DOSE FORM: 245)
     Route: 048
     Dates: start: 20190813, end: 20190815
  39. LETROZOLE. [Suspect]
     Active Substance: LETROZOLE
     Indication: BREAST CANCER
     Dosage: 2.5 MG, QD (CUMULATIVE DOSE TO FIRST REACTION: 92.5 MG)
     Route: 048
     Dates: start: 20180119, end: 20180126
  40. ADCAL D3 [Concomitant]
     Active Substance: CALCIUM CARBONATE\CHOLECALCIFEROL
     Dosage: 4 DF QD (DOSE FORM: 5)
     Route: 048
     Dates: start: 20140127
  41. CLOTRIMAZOLE. [Concomitant]
     Active Substance: CLOTRIMAZOLE
     Dosage: UNK
     Route: 061
     Dates: start: 20180125
  42. DOXYCYCLINE. [Concomitant]
     Active Substance: DOXYCYCLINE
     Dosage: 100 MG AND 11 DAYS
     Route: 048
     Dates: start: 20181114, end: 20181119
  43. FERROUS FUMARATE [Concomitant]
     Active Substance: FERROUS FUMARATE
     Dosage: 630 MG (DOSE FORM: 245)
     Route: 048
     Dates: start: 20190730
  44. FEXOFENADINE [Concomitant]
     Active Substance: FEXOFENADINE HYDROCHLORIDE
     Indication: PRURITUS
     Dosage: 180 MG, QD (DOSE FORM: 245)
     Route: 048
     Dates: start: 20190403, end: 20190403
  45. FOLIC ACID. [Concomitant]
     Active Substance: FOLIC ACID
     Dosage: 5 MG, QD (DOSE FORM: 245)
     Route: 048
     Dates: start: 20030207
  46. HEPARIN [Concomitant]
     Active Substance: HEPARIN SODIUM
     Indication: PROPHYLAXIS
     Dosage: 5 ML
     Route: 042
     Dates: start: 20190502, end: 20191106
  47. METRONIDAZOLE. [Concomitant]
     Active Substance: METRONIDAZOLE
     Dosage: 1200 MG, QD (CUMUTAIVE DOSE TO FIRST REACTION: 324000.0 MG)
     Route: 042
     Dates: start: 20181122, end: 20181123
  48. METRONIDAZOLE. [Concomitant]
     Active Substance: METRONIDAZOLE
     Dosage: 400 MG AND 31 DAYS
     Route: 042
     Dates: start: 20181122, end: 20181123
  49. METRONIDAZOLE. [Concomitant]
     Active Substance: METRONIDAZOLE
     Dosage: 1500 MG, QD (DOSE FORM: 245, CUMULATIVE DOSE TO FIRST REACTION: 844437.5 MG)
     Route: 048
     Dates: start: 20190911, end: 20190915
  50. ONDANSETRON [Concomitant]
     Active Substance: ONDANSETRON
     Dosage: 4 MG (DOSE FORM: 245)
     Route: 048
     Dates: start: 20200214, end: 20200214
  51. ONDANSETRON [Concomitant]
     Active Substance: ONDANSETRON
     Dosage: 4 MG, AS NEEDED
     Route: 048
     Dates: start: 20200214, end: 20200214
  52. PENTASA [Concomitant]
     Active Substance: MESALAMINE
     Indication: CROHN^S DISEASE
     Dosage: 1 WITH NO UNIT REPORTED, SACHETS, QD
     Route: 048
     Dates: start: 20131217, end: 20180730
  53. RANITIDINE. [Concomitant]
     Active Substance: RANITIDINE
     Dosage: 300 MG
     Route: 048
     Dates: start: 20180212
  54. TERBUTALINE [Concomitant]
     Active Substance: TERBUTALINE
     Dosage: 800 MICROGRAM, QD
     Dates: start: 20030108
  55. TRIMETHOPRIM. [Concomitant]
     Active Substance: TRIMETHOPRIM
     Dosage: 200 MG AND 21 DAYS
     Route: 048
     Dates: start: 20190813, end: 20190815
  56. VANCOMYCIN [Concomitant]
     Active Substance: VANCOMYCIN
     Dosage: 1000 MG, QD
     Route: 042
     Dates: start: 20190527
  57. VANCOMYCIN [Concomitant]
     Active Substance: VANCOMYCIN
     Dosage: 500 MG AND 21 DAYS
     Route: 042
     Dates: start: 20190527
  58. ADCAL D3 [Concomitant]
     Active Substance: CALCIUM CARBONATE\CHOLECALCIFEROL
     Dosage: 2 DOSAGE AND 21 DAYS
     Route: 048
     Dates: start: 20140127
  59. CETIRIZINE [Concomitant]
     Active Substance: CETIRIZINE HYDROCHLORIDE
     Dosage: 10 MICROGRAM
     Route: 048
     Dates: start: 20080430
  60. CHLORPHENAMINE MALEATE [Concomitant]
     Active Substance: CHLORPHENIRAMINE MALEATE
     Dosage: 4 MG TAKEN PRIOR TO STUDY
     Route: 042
     Dates: start: 20180202
  61. CIPROFLOXACIN. [Concomitant]
     Active Substance: CIPROFLOXACIN
     Dosage: 1000 MG, QD (DOSE FORM: 245)
     Route: 048
     Dates: start: 201910, end: 20191009
  62. CIPROFLOXACIN. [Concomitant]
     Active Substance: CIPROFLOXACIN
     Dosage: 500 MG AND 21 DAYS
     Route: 048
     Dates: start: 201910, end: 20191009
  63. COCODAMOL [Concomitant]
     Active Substance: ACETAMINOPHEN\CODEINE PHOSPHATE
     Dosage: 1 DOSAGE 30/500 MG FORM STRENGTH
     Route: 065
     Dates: start: 20030104, end: 20180225
  64. DOXAZOSIN [Concomitant]
     Active Substance: DOXAZOSIN MESYLATE
     Dosage: 2 MG, QD (DOSE FORM: 245, CUMULATIVE DOSE TO FIRST REACTION: 1119.9166 MG)
     Route: 048
     Dates: start: 20190908
  65. DOXYCYCLINE. [Concomitant]
     Active Substance: DOXYCYCLINE
     Dosage: 100 MG, QD (DOSE FORM: 245, CUMULATIVE DOSE TO FIRST REACTION: 26200.0 MG)
     Route: 048
     Dates: start: 20181114, end: 20181119
  66. DOXYCYCLINE. [Concomitant]
     Active Substance: DOXYCYCLINE
     Dosage: 100 MG AND 21 DAYS
     Route: 048
     Dates: start: 20181113, end: 20181113
  67. EUMOVATE [Concomitant]
     Active Substance: CLOBETASONE BUTYRATE
     Indication: PRURITUS
     Dosage: 2 WITH NO UNIT REPORTED, QD
     Route: 061
     Dates: start: 20190403
  68. FERROUS FUMARATE [Concomitant]
     Active Substance: FERROUS FUMARATE
     Dosage: 210 MG AND 31 DAYS
     Route: 048
     Dates: start: 20190730
  69. GENTAMICIN. [Concomitant]
     Active Substance: GENTAMICIN
     Indication: SEPSIS
     Dosage: 400 MG
     Route: 042
     Dates: start: 20181119, end: 20181119
  70. GENTAMICIN. [Concomitant]
     Active Substance: GENTAMICIN
     Dosage: 400 MG
     Route: 042
     Dates: start: 20190528, end: 20190528
  71. GENTAMICIN. [Concomitant]
     Active Substance: GENTAMICIN
     Dosage: 400 MG
     Route: 042
     Dates: start: 20190913, end: 20190913
  72. METOCLOPRAMIDE. [Concomitant]
     Active Substance: METOCLOPRAMIDE
     Dosage: 10 MG (DOSE FORM: 245)
     Route: 048
     Dates: start: 20190909, end: 20190909
  73. METOCLOPRAMIDE. [Concomitant]
     Active Substance: METOCLOPRAMIDE
     Dosage: 10 MG
     Route: 048
     Dates: start: 20190909, end: 20190909
  74. METRONIDAZOLE. [Concomitant]
     Active Substance: METRONIDAZOLE
     Dosage: 1500 MG, QD (CUMULATIVE DOSE TO FIRST REACTION: 682437.5 MG)
     Route: 042
     Dates: start: 20190526
  75. METRONIDAZOLE. [Concomitant]
     Active Substance: METRONIDAZOLE
     Dosage: 500 MG AND 31 DAYS
     Route: 042
     Dates: start: 20190911, end: 20190915
  76. OMEPRAZOLE. [Concomitant]
     Active Substance: OMEPRAZOLE
     Dosage: 20 MG AND 11 DAYS
     Route: 048
     Dates: start: 20091014
  77. ONDANSETRON [Concomitant]
     Active Substance: ONDANSETRON
     Dosage: 4 MG, AS NEEDED
     Route: 048
     Dates: start: 20190920, end: 20190920
  78. PARACETAMOL [Concomitant]
     Active Substance: ACETAMINOPHEN
     Dosage: 1 G (DOSE FORM: 245)
     Route: 042
     Dates: start: 20181220, end: 20181220
  79. PIRITON [Concomitant]
     Active Substance: CHLORPHENIRAMINE MALEATE
     Dosage: 4 MG
     Route: 048
     Dates: start: 20180125
  80. RANITIDINE. [Concomitant]
     Active Substance: RANITIDINE
     Dosage: 300 MG QD (DOSE FORM: 245)
     Route: 048
     Dates: start: 20200212
  81. SILVER NITRATE. [Concomitant]
     Active Substance: SILVER NITRATE
     Indication: HAEMORRHAGE
     Dosage: 1 UNIT
     Route: 061
     Dates: start: 20180329, end: 20180329
  82. SILVER NITRATE. [Concomitant]
     Active Substance: SILVER NITRATE
     Dosage: UNK
     Route: 061
     Dates: start: 20190510, end: 20190510
  83. SILVER NITRATE. [Concomitant]
     Active Substance: SILVER NITRATE
     Dosage: UNK
     Route: 061
     Dates: start: 20190730, end: 20190730
  84. SODIUM CHLORIDE. [Concomitant]
     Active Substance: SODIUM CHLORIDE
     Dosage: 500 ML
     Route: 042
     Dates: start: 20181123, end: 20181123
  85. TEICOPLANIN [Concomitant]
     Active Substance: TEICOPLANIN
     Dosage: 400 MG
     Route: 065
     Dates: start: 20181220, end: 20181224
  86. TRANEXAMIC ACID. [Concomitant]
     Active Substance: TRANEXAMIC ACID
     Dosage: 1 G AND 31 DAYS
     Route: 048
     Dates: start: 20190804, end: 20190806
  87. VANCOMYCIN [Concomitant]
     Active Substance: VANCOMYCIN
     Dosage: 2000 MG
     Route: 042
     Dates: start: 20190526, end: 20190526
  88. TRASTUZUMAB (UNKNOWN) [Suspect]
     Active Substance: TRASTUZUMAB
     Indication: BREAST CANCER
     Dosage: 600 MG (DOSE FORM: 231)
     Route: 058
     Dates: start: 20180202, end: 20180827
  89. LETROZOLE. [Suspect]
     Active Substance: LETROZOLE
     Dosage: 2.5 MG, QD (CUMULATIVE DOSE TO FIRST REACTION: 222.39583 MG)
     Route: 048
     Dates: start: 20180525, end: 20181011
  90. LETROZOLE. [Suspect]
     Active Substance: LETROZOLE
     Dosage: 2.5 MG, QD (CUMULATIVE DOSE TO FIRST REACTION: 222.39583 MG)
     Route: 048
     Dates: start: 20180525, end: 20181011
  91. AMOXICILLIN. [Concomitant]
     Active Substance: AMOXICILLIN
     Dosage: 1 G AND 31 DAYS
     Route: 042
     Dates: start: 20190911, end: 20190915
  92. BENDROFLUMETHIAZIDE [Concomitant]
     Active Substance: BENDROFLUMETHIAZIDE
     Dosage: 2.5 MG AND 11 DAYS
     Route: 048
     Dates: start: 20030114
  93. BENDROFLUMETHIAZIDE [Concomitant]
     Active Substance: BENDROFLUMETHIAZIDE
     Dosage: 2.5 MG AND 11 DAYS
     Route: 048
     Dates: start: 20190908
  94. CLARITHROMYCIN. [Concomitant]
     Active Substance: CLARITHROMYCIN
     Dosage: 1000 MG, QD (DOSE FORM: 245)
     Route: 048
     Dates: start: 20190717, end: 20190724
  95. CLOTRIMAZOLE. [Concomitant]
     Active Substance: CLOTRIMAZOLE
     Dosage: DOSE FORM: 17
     Route: 061
     Dates: start: 20180125
  96. CO?AMOXICLAV [Concomitant]
     Active Substance: AMOXICILLIN\CLAVULANATE POTASSIUM
     Dosage: 625 MG AND 31 DAYS
     Route: 048
     Dates: start: 20190915, end: 20190916
  97. COCODAMOL [Concomitant]
     Active Substance: ACETAMINOPHEN\CODEINE PHOSPHATE
     Dosage: 1 DF 30/500 MG FORM STRENGTH (DOSE FORM: 245)
     Route: 048
     Dates: start: 20030104, end: 20180225
  98. COCODAMOL [Concomitant]
     Active Substance: ACETAMINOPHEN\CODEINE PHOSPHATE
     Dosage: 1 DF (DOSE FORM: 245)
     Route: 065
     Dates: start: 20180302
  99. COLECALCIFEROL [Concomitant]
     Active Substance: CHOLECALCIFEROL
     Dosage: 2 WITH NO UNIT REPORTED, QD (DOSE FORM: 245)
     Route: 048
     Dates: start: 20180926
  100. DOXAZOSIN [Concomitant]
     Active Substance: DOXAZOSIN MESYLATE
     Dosage: 2 MG AND 11 DAYS
     Route: 048
     Dates: start: 20040816
  101. GENTAMICIN. [Concomitant]
     Active Substance: GENTAMICIN
     Dosage: 400 MG (ROA: INTRA CORPUS CAVERNOSUM)
     Dates: start: 20190911, end: 20190911
  102. HYDROXOCOBALAMIN [Concomitant]
     Active Substance: HYDROXOCOBALAMIN
     Dosage: 1 MG/1ML
     Route: 030
     Dates: start: 20020115
  103. METRONIDAZOLE. [Concomitant]
     Active Substance: METRONIDAZOLE
     Dosage: 1500 MG, QD (CUMULATIVE DOSE TO FIRST REACTION: 400500.0 MG)
     Route: 042
     Dates: start: 20181119, end: 20181121
  104. OMEPRAZOLE. [Concomitant]
     Active Substance: OMEPRAZOLE
     Dosage: 80 MG, QD (DOSE FORM: 245, CUMULATIVE DOSE TO FIRST REACTION: 49600.0 MG)
     Route: 048
     Dates: start: 20191107, end: 20200205
  105. SODIUM CHLORIDE. [Concomitant]
     Active Substance: SODIUM CHLORIDE
     Indication: GASTROINTESTINAL HAEMORRHAGE
     Dosage: 500 ML
     Route: 042
     Dates: start: 20181122, end: 20181123
  106. SODIUM CHLORIDE. [Concomitant]
     Active Substance: SODIUM CHLORIDE
     Dosage: 500 ML
     Route: 042
     Dates: start: 20190522, end: 20190522
  107. TERBUTALINE [Concomitant]
     Active Substance: TERBUTALINE
     Dosage: 200 MICROGRAM 41 DAYS
     Dates: start: 20030108
  108. VANCOMYCIN [Concomitant]
     Active Substance: VANCOMYCIN
     Indication: SEPSIS
     Dosage: 2000 MG
     Route: 042
     Dates: start: 20181119, end: 20181119
  109. BENDROFLUMETHIAZIDE [Concomitant]
     Active Substance: BENDROFLUMETHIAZIDE
     Dosage: 2.5 MG, QD (DOSE FORM: 245; CUMULATIVE DOSE TO FIRST REACTION: 13802.5 MG)
     Route: 048
     Dates: start: 20030114
  110. BENZYDAMINE [Concomitant]
     Active Substance: BENZYDAMINE
     Dosage: 5 ML (MOUTHWASH)
     Route: 065
     Dates: start: 20180414
  111. CHLORHEXIDINE [Concomitant]
     Active Substance: CHLORHEXIDINE
     Dosage: 10 ML AS NEEDED
     Route: 065
     Dates: start: 20181019
  112. CLARITHROMYCIN. [Concomitant]
     Active Substance: CLARITHROMYCIN
     Dosage: 500 MG AND 21 DAYS
     Route: 048
     Dates: start: 20180717, end: 20180724
  113. DOXYCYCLINE. [Concomitant]
     Active Substance: DOXYCYCLINE
     Dosage: 200 MG, QD (DOSE FORM: 245, CUMULATIVE DOSE TO FIRST REACTION: 52200.0 MG)
     Route: 048
     Dates: start: 20181113, end: 20181113
  114. FOLIC ACID. [Concomitant]
     Active Substance: FOLIC ACID
     Dosage: 5 MG AND 11 DAYS
     Route: 048
     Dates: start: 20030207
  115. METRONIDAZOLE. [Concomitant]
     Active Substance: METRONIDAZOLE
     Dosage: 400 MG
     Route: 048
     Dates: start: 20190916, end: 20190916
  116. METRONIDAZOLE. [Concomitant]
     Active Substance: METRONIDAZOLE
     Dosage: 400 MG (DOSE FORM: 245)
     Route: 048
     Dates: start: 20190918, end: 20190918
  117. ONDANSETRON [Concomitant]
     Active Substance: ONDANSETRON
     Dosage: 4 MG, AS NEEDED
     Route: 042
     Dates: start: 20181119, end: 20181122
  118. ONDANSETRON [Concomitant]
     Active Substance: ONDANSETRON
     Dosage: 4 MG, AS NEEDED
     Route: 048
     Dates: start: 20200214, end: 20200214
  119. PARACETAMOL [Concomitant]
     Active Substance: ACETAMINOPHEN
     Dosage: 1 G (DOSE FORM: 245)
     Route: 048
     Dates: start: 20180916, end: 20181002
  120. PARACETAMOL [Concomitant]
     Active Substance: ACETAMINOPHEN
     Dosage: 1 G
     Route: 048
     Dates: start: 20181220, end: 20181220
  121. PENTASA [Concomitant]
     Active Substance: MESALAMINE
     Dosage: 4 G, QD
     Route: 048
     Dates: start: 20180730
  122. QUININE SULPHATE [Concomitant]
     Active Substance: QUININE SULFATE
     Dosage: 200 MG, QD (DOSE FORM: 245, CUMULATIVE DOSE TO FIRST REACTION: 1024000.0 MG)
     Route: 048
     Dates: start: 20040219
  123. SODIUM CHLORIDE. [Concomitant]
     Active Substance: SODIUM CHLORIDE
     Dosage: 0.18NA CL 4% GLUCOSE
     Route: 042
     Dates: start: 20190523, end: 20190523
  124. PACLITAXEL. [Suspect]
     Active Substance: PACLITAXEL
     Indication: BREAST CANCER
     Dosage: 156 MG, 1/WEEK (CUMULATIVE DOSE TO FIRST REACTION: 512.5714 MG)
     Route: 042
     Dates: start: 20180202, end: 20180518
  125. AMOXICILLIN. [Concomitant]
     Active Substance: AMOXICILLIN
     Dosage: 3 G, QD
     Route: 042
     Dates: start: 20190911, end: 20190915
  126. CETIRIZINE [Concomitant]
     Active Substance: CETIRIZINE HYDROCHLORIDE
     Dosage: 10 MICROGRAM (DOSE FORM: 245)
     Route: 048
     Dates: start: 20080430
  127. CHLORPHENAMINE [Concomitant]
     Active Substance: CHLORPHENIRAMINE MALEATE
     Dosage: 10 MG (TAKEN PRIOR TO STUDY)
     Route: 042
     Dates: start: 20180202
  128. CHLORPHENAMINE [Concomitant]
     Active Substance: CHLORPHENIRAMINE MALEATE
     Dosage: 4 MG AND 11 DAYS
     Route: 048
     Dates: start: 20190909, end: 20190915
  129. CO?AMOXICLAV [Concomitant]
     Active Substance: AMOXICILLIN\CLAVULANATE POTASSIUM
     Dosage: 1875 MG, QD (DOSE FORM: 245)
     Route: 048
     Dates: start: 20190915, end: 20190916
  130. COCODAMOL [Concomitant]
     Active Substance: ACETAMINOPHEN\CODEINE PHOSPHATE
     Dosage: 1 DOSAGE
     Route: 065
     Dates: start: 20180302
  131. COLECALCIFEROL [Concomitant]
     Active Substance: CHOLECALCIFEROL
     Dosage: 4 DF, QD (DOSE FORM: 245)
     Route: 048
     Dates: start: 20180920
  132. FEXOFENADINE [Concomitant]
     Active Substance: FEXOFENADINE HYDROCHLORIDE
     Indication: PRURITUS
     Dosage: 180 MG AND 11 DAYS
     Route: 048
     Dates: start: 20190403, end: 20190403
  133. FLUCONAZOLE. [Concomitant]
     Active Substance: FLUCONAZOLE
     Dosage: 100 MG, QD (DOSE FORM: 245)
     Route: 048
     Dates: start: 20180125
  134. METOCLOPRAMIDE. [Concomitant]
     Active Substance: METOCLOPRAMIDE
     Dosage: 10 MG TAKEN PRIOR TO STUDY (DOSE FORM: 245)
     Route: 048
     Dates: start: 20180202
  135. METRONIDAZOLE. [Concomitant]
     Active Substance: METRONIDAZOLE
     Dosage: 500 MG AND 31 DAYS
     Route: 042
     Dates: start: 20181119, end: 20181121
  136. METRONIDAZOLE. [Concomitant]
     Active Substance: METRONIDAZOLE
     Dosage: 1200 MG, QD (CUMULATIVE DOSE TO FIRST REACTION: 681550.0 MG)
     Route: 048
     Dates: start: 20190916, end: 20190916
  137. METRONIDAZOLE. [Concomitant]
     Active Substance: METRONIDAZOLE
     Dosage: 400 MG AND 31 DAYS
     Route: 048
     Dates: start: 20190916, end: 20190916
  138. PARACETAMOL [Concomitant]
     Active Substance: ACETAMINOPHEN
     Dosage: 1 G, AS NEEDED (DOSE FORM: 245)
     Route: 048
     Dates: start: 20181003
  139. PARACETAMOL [Concomitant]
     Active Substance: ACETAMINOPHEN
     Dosage: 1 G
     Route: 048
     Dates: start: 20180225, end: 20180301
  140. PENTASA [Concomitant]
     Active Substance: MESALAMINE
     Dosage: 4 G AND 11 DAYS
     Route: 048
     Dates: start: 20180730
  141. RED BLOOD CELLS [Concomitant]
     Active Substance: HUMAN RED BLOOD CELL
     Indication: GASTROINTESTINAL HAEMORRHAGE
     Dosage: UNK
     Route: 042
     Dates: start: 20190511, end: 20190511
  142. RED BLOOD CELLS [Concomitant]
     Active Substance: HUMAN RED BLOOD CELL
     Indication: HAEMORRHAGE
     Dosage: 3 UNIT
     Route: 042
     Dates: start: 20190523, end: 20190524
  143. SUGAMMADEX [Concomitant]
     Active Substance: SUGAMMADEX
     Dosage: 200 MG
     Route: 042
     Dates: start: 20181220, end: 20181220
  144. TRANEXAMIC ACID. [Concomitant]
     Active Substance: TRANEXAMIC ACID
     Dosage: 3 G, QD
     Route: 048
     Dates: start: 20190804, end: 20190806
  145. TRASTUZUMAB EMTANSINE [Suspect]
     Active Substance: ADO-TRASTUZUMAB EMTANSINE
     Indication: BREAST CANCER
     Dosage: 420 MG EVERY 3 WEEKS (DOSE FORM: 230)
     Route: 042
     Dates: start: 20181019, end: 20190927
  146. CHLORPHENAMINE [Concomitant]
     Active Substance: CHLORPHENIRAMINE MALEATE
     Dosage: 4 MG, QD (DOSE FORM: 245)
     Route: 048
     Dates: start: 20190909, end: 20190915
  147. COCODAMOL [Concomitant]
     Active Substance: ACETAMINOPHEN\CODEINE PHOSPHATE
     Dosage: 1 DF 30/500 MG FORM STRENGTH (DOSE FORM: 245)
     Route: 065
     Dates: start: 20030104, end: 20180225
  148. CYCLIZINE [Concomitant]
     Active Substance: CYCLIZINE
     Dosage: 50 MG (DOSE FORM: 245)
     Route: 048
     Dates: start: 20181102
  149. CYCLIZINE [Concomitant]
     Active Substance: CYCLIZINE
     Dosage: 50 MG
     Route: 048
     Dates: start: 20181102
  150. DOXAZOSIN [Concomitant]
     Active Substance: DOXAZOSIN MESYLATE
     Dosage: 2 MG, QD (DOSE FORM: 245, CUMULATIVE DOSE TO FIRST REACTION: 9882.083 MG)
     Route: 048
     Dates: start: 20040816
  151. EUMOVATE [Concomitant]
     Active Substance: CLOBETASONE BUTYRATE
     Indication: SKIN ABRASION
     Dosage: UNK
  152. FEXOFENADINE [Concomitant]
     Active Substance: FEXOFENADINE HYDROCHLORIDE
     Indication: SKIN ABRASION
     Dosage: 180 MG, QD (DOSE FORM: 245)
     Route: 048
     Dates: start: 201910, end: 20191119
  153. FEXOFENADINE [Concomitant]
     Active Substance: FEXOFENADINE HYDROCHLORIDE
     Indication: SKIN ABRASION
     Dosage: 180 MG AND 11 DAYS
     Route: 048
     Dates: start: 201910, end: 20191119
  154. GLUCOSE [Concomitant]
     Active Substance: DEXTROSE
     Indication: GASTROINTESTINAL HAEMORRHAGE
     Dosage: 0.18% NACL 4% GLUCOSE + 20MML KCL
     Route: 042
     Dates: start: 20190525, end: 20190525
  155. HYDROCORTISONE. [Concomitant]
     Active Substance: HYDROCORTISONE
     Dosage: 1 WITH NO UNIT REPORTED, AS NEEDED
     Route: 061
     Dates: start: 20180605
  156. METRONIDAZOLE. [Concomitant]
     Active Substance: METRONIDAZOLE
     Dosage: 1500 MG, QD (CUMULATIVE DOSE TO FIRST REACTION: 296937.5 MG)
     Route: 042
     Dates: start: 20190911, end: 20190915
  157. METRONIDAZOLE. [Concomitant]
     Active Substance: METRONIDAZOLE
     Dosage: 1200 MG, QD (DOSE FORM: 245)
     Route: 048
     Dates: start: 201910, end: 20191009
  158. ONDANSETRON [Concomitant]
     Active Substance: ONDANSETRON
     Dosage: 4 MG, AS NEEDED (DOSE FORM: 245)
     Route: 048
     Dates: start: 20181216, end: 20190107
  159. PARACETAMOL [Concomitant]
     Active Substance: ACETAMINOPHEN
     Indication: OEDEMA
     Dosage: 1 G
     Route: 048
     Dates: start: 20180916, end: 20181002
  160. RANITIDINE. [Concomitant]
     Active Substance: RANITIDINE
     Dosage: 50 MG (TAKEN PRIOR TO STUDY)
     Route: 042
     Dates: start: 20180202
  161. RANITIDINE. [Concomitant]
     Active Substance: RANITIDINE
     Dosage: 300 MG
     Route: 048
     Dates: start: 20180212
  162. TERBUTALINE [Concomitant]
     Active Substance: TERBUTALINE
     Dosage: 200 MICROGRAM, QD
     Dates: start: 20030108
  163. ZOLEDRONIC ACID [Concomitant]
     Active Substance: ZOLEDRONIC ACID
     Indication: METASTASES TO BONE
     Dosage: 4 MG
     Route: 042
     Dates: start: 20181019

REACTIONS (12)
  - C-reactive protein increased [Recovered/Resolved]
  - Wound [Recovered/Resolved]
  - Cancer pain [Recovered/Resolved]
  - Disease progression [Recovered/Resolved]
  - Mucosal inflammation [Recovered/Resolved]
  - Vomiting [Recovered/Resolved]
  - Oedema [Recovered/Resolved]
  - Bone pain [Recovered/Resolved]
  - Arthralgia [Not Recovered/Not Resolved]
  - Diarrhoea [Recovered/Resolved]
  - Product use issue [Unknown]
  - Oedema peripheral [Recovered/Resolved]

NARRATIVE: CASE EVENT DATE: 20180225
